FAERS Safety Report 5192160-2 (Version None)
Quarter: 2006Q4

REPORT INFORMATION
  Report Type: 
  Country: None (occurrence: None)
  Receive Date: 20061221
  Receipt Date: 20061221
  Transmission Date: 20070319
  Serious: No
  Sender: FDA-Public Use
  Company Number: None

PATIENT
  Age: 89 Year
  Sex: Male
  Weight: 80.27 kg

DRUGS (15)
  1. NORVASC [Suspect]
     Indication: HYPERTENSION
     Dates: start: 20061106, end: 20061120
  2. ACTOS [Concomitant]
  3. DILANTIN [Concomitant]
  4. SYNTHROID [Concomitant]
  5. CALCIUM + VITAMIN D [Concomitant]
  6. LORTAB [Concomitant]
  7. LISINOPRIL [Concomitant]
  8. BENEFIBER [Concomitant]
  9. AZOPT EYE DROPS [Concomitant]
  10. TRAVATAN EYE DROPS [Concomitant]
  11. PILOCARPINE EYE DROPS [Concomitant]
  12. BENEPROTEIN [Concomitant]
  13. . [Concomitant]
  14. . [Concomitant]
  15. . [Concomitant]

REACTIONS (4)
  - GRUNTING [None]
  - LIP SWELLING [None]
  - PHARYNGEAL OEDEMA [None]
  - SPEECH DISORDER [None]
